FAERS Safety Report 6295612-7 (Version None)
Quarter: 2009Q3

REPORT INFORMATION
  Report Type: 
  Country: None (occurrence: None)
  Receive Date: 20090731
  Receipt Date: 20090723
  Transmission Date: 20100115
  Serious: Yes (Hospitalization, Disabling)
  Sender: FDA-Public Use
  Company Number: OSCN-NO-0901S-0032

PATIENT
  Age: 63 Year
  Sex: Male

DRUGS (8)
  1. OMNISCAN [Suspect]
     Indication: DRUG USE FOR UNKNOWN INDICATION
     Dosage: 40 ML, SINGLE DOSE, I.V.
     Route: 042
     Dates: start: 20051205, end: 20051205
  2. GADOLINIUM (UNSPECIFIED) [Concomitant]
  3. EPOETIN BETA (NEORECORMON) [Concomitant]
  4. CALCIUM ACETATE (PHOS-EX) [Concomitant]
  5. DIALYSIS VITAMINS [Concomitant]
  6. AMLODIPIN (NORVASC) [Concomitant]
  7. RAMIPRIL [Concomitant]
  8. PANTOPRAZOL      (PANTOLOC) [Concomitant]

REACTIONS (15)
  - ASTHENIA [None]
  - BLOOD CREATININE INCREASED [None]
  - BLOOD PHOSPHORUS INCREASED [None]
  - COLON CANCER [None]
  - DRUG INTERACTION [None]
  - DRUG TOXICITY [None]
  - DYSPHAGIA [None]
  - FIBROSIS [None]
  - HEPATIC FAILURE [None]
  - LEFT VENTRICULAR DYSFUNCTION [None]
  - OEDEMA PERIPHERAL [None]
  - PULMONARY FIBROSIS [None]
  - SCLERODERMA [None]
  - SERUM PROCOLLAGEN TYPE III N-TERMINAL PROPEPTIDE INCREASED [None]
  - VOMITING [None]
